FAERS Safety Report 5185598-0 (Version None)
Quarter: 2006Q4

REPORT INFORMATION
  Report Type: 
  Country: None (occurrence: None)
  Receive Date: 20061220
  Receipt Date: 20060814
  Transmission Date: 20070319
  Serious: No
  Sender: FDA-Public Use
  Company Number: US-GLAXOSMITHKLINE-A0616455A

PATIENT
  Age: 33 Year
  Sex: Female

DRUGS (3)
  1. NICODERM CQ [Suspect]
     Dates: start: 20060809
  2. NICODERM CQ [Suspect]
     Dates: start: 20060809
  3. CELEXA [Concomitant]

REACTIONS (7)
  - ABNORMAL DREAMS [None]
  - CRYING [None]
  - EMOTIONAL DISTRESS [None]
  - INSOMNIA [None]
  - IRRITABILITY [None]
  - PANIC ATTACK [None]
  - POOR QUALITY SLEEP [None]
